FAERS Safety Report 20126282 (Version 1)
Quarter: 2021Q4

REPORT INFORMATION
  Report Type: Spontaneous
  Country: US (occurrence: US)
  Receive Date: 20211129
  Receipt Date: 20211129
  Transmission Date: 20220303
  Serious: Yes (Hospitalization)
  Sender: FDA-Public Use
  Company Number: US-MYLANLABS-2021M1087632

PATIENT
  Age: 28 Year
  Sex: Female

DRUGS (3)
  1. HEPARIN [Suspect]
     Active Substance: HEPARIN SODIUM
     Indication: Anticoagulant therapy
     Dosage: UNK
     Route: 065
  2. ARGATROBAN [Suspect]
     Active Substance: ARGATROBAN
     Indication: Cardiopulmonary bypass
     Dosage: UNK
     Route: 040
  3. ARGATROBAN [Suspect]
     Active Substance: ARGATROBAN
     Dosage: UNK (INTRAVENOUS INFUSION)
     Route: 042

REACTIONS (2)
  - Heparin-induced thrombocytopenia [Recovered/Resolved]
  - Off label use [Unknown]
